FAERS Safety Report 24806241 (Version 1)
Quarter: 2025Q1

REPORT INFORMATION
  Report Type: Report from Study
  Country: KR (occurrence: KR)
  Receive Date: 20250103
  Receipt Date: 20250103
  Transmission Date: 20250409
  Serious: Yes (Hospitalization)
  Sender: KOWA PHARM
  Company Number: KR-KOWA-24JP003049

PATIENT
  Age: 72 Year
  Sex: Female
  Weight: 59 kg

DRUGS (14)
  1. EZETIMIBE\PITAVASTATIN CALCIUM [Suspect]
     Active Substance: EZETIMIBE\PITAVASTATIN CALCIUM
     Dosage: 1 DF, QD
     Route: 048
     Dates: start: 20221005
  2. K-CAB [Concomitant]
     Indication: Gastrooesophageal reflux prophylaxis
     Dosage: 50 MG, QD
     Route: 048
     Dates: start: 20191209
  3. ENTELON [Concomitant]
     Indication: Oedema peripheral
     Dosage: 150 MG, BID
     Route: 048
     Dates: start: 20210518
  4. THEOBROMINE [Concomitant]
     Active Substance: THEOBROMINE
     Indication: Cough
     Dosage: 300 MG, BID
     Route: 048
     Dates: start: 20181108
  5. CALCIUM CARBONATE\CHOLECALCIFEROL [Concomitant]
     Active Substance: CALCIUM CARBONATE\CHOLECALCIFEROL
     Indication: Osteoporosis
     Dosage: 1 DF, QD
     Route: 048
     Dates: start: 20180329
  6. TRACINONE [Concomitant]
     Indication: Rheumatoid arthritis
     Dosage: 4 MG, QD
     Route: 048
  7. ZOPYRIN [Concomitant]
     Indication: Rheumatoid arthritis
     Dosage: 500 MG, BID
     Route: 048
     Dates: start: 20180329
  8. POLAPREZINC [Concomitant]
     Active Substance: POLAPREZINC
     Indication: Prophylaxis against gastrointestinal ulcer
     Dosage: 1 DF, BID
     Route: 048
     Dates: start: 20180405
  9. CONBLOC [Concomitant]
     Indication: Cardiac failure
     Dosage: 1.25 MG, QD
     Dates: start: 20200220
  10. HUTRADOL [Concomitant]
     Indication: Rheumatoid arthritis
     Dates: start: 20210210
  11. AMITRIPTYLINE HYDROCHLORIDE [Concomitant]
     Active Substance: AMITRIPTYLINE HYDROCHLORIDE
     Indication: Nocturia
     Dosage: 5 MG, QD
     Dates: start: 20201007
  12. HALOXIN [ALUMINIUM HYDROXIDE] [Concomitant]
     Indication: Rheumatoid arthritis
     Dosage: 200 MG, QD
     Route: 048
     Dates: start: 20190227
  13. QSYMIA [Concomitant]
     Active Substance: PHENTERMINE HYDROCHLORIDE\TOPIRAMATE
     Indication: Weight increased
     Dosage: 1 DF, QD
     Route: 048
     Dates: start: 20210421
  14. KETOTOP EL [Concomitant]
     Indication: Osteoarthritis
     Dosage: 30 MG, QD
     Route: 062
     Dates: start: 20180227

REACTIONS (2)
  - Tinnitus [Recovered/Resolved]
  - Headache [Recovered/Resolved]

NARRATIVE: CASE EVENT DATE: 20230517
